FAERS Safety Report 8574537-8 (Version None)
Quarter: 2012Q3

REPORT INFORMATION
  Report Type: 
  Country: None (occurrence: None)
  Receive Date: 20120806
  Receipt Date: 20120802
  Transmission Date: 20120928
  Serious: No
  Sender: FDA-Public Use
  Company Number: US-009507513-1208USA001553

PATIENT

DRUGS (2)
  1. SAPHRIS [Suspect]
     Indication: BIPOLAR DISORDER
     Dosage: UNK
     Route: 060
     Dates: start: 20120723
  2. SUDAFED 12 HOUR [Concomitant]

REACTIONS (2)
  - HYPOAESTHESIA ORAL [None]
  - HYPOAESTHESIA [None]
